FAERS Safety Report 8112915-1 (Version None)
Quarter: 2012Q1

REPORT INFORMATION
  Report Type: 
  Country: None (occurrence: None)
  Receive Date: 20120203
  Receipt Date: 20120130
  Transmission Date: 20120608
  Serious: Yes (Death, Hospitalization, Other)
  Sender: FDA-Public Use
  Company Number: IL-ACTELION-A-CH2012-59134

PATIENT
  Age: 69 Year
  Sex: Male

DRUGS (12)
  1. TRACLEER [Suspect]
     Dosage: 125 MG, BID
     Route: 048
  2. LEVOTHYROXINE SODIUM [Concomitant]
  3. PREDNISONE TAB [Concomitant]
  4. BETAHISTINE [Concomitant]
  5. VENTAVIS [Suspect]
     Indication: PULMONARY ARTERIAL HYPERTENSION
     Route: 055
  6. ESCITALOPRAM [Concomitant]
  7. AUGMENTIN '125' [Concomitant]
  8. TRACLEER [Suspect]
     Dosage: 62.5 MG, BID
     Route: 048
     Dates: start: 20110901
  9. TRACLEER [Suspect]
     Indication: PULMONARY ARTERIAL HYPERTENSION
     Dosage: 125 MG, BID
     Route: 048
     Dates: start: 20091201, end: 20100901
  10. CALCIUM [Concomitant]
  11. LEVOFLOXACIN [Concomitant]
  12. AZENIL [Concomitant]

REACTIONS (9)
  - RESPIRATORY FAILURE [None]
  - HEPATIC CIRRHOSIS [None]
  - ASPARTATE AMINOTRANSFERASE INCREASED [None]
  - HEPATIC ENZYME INCREASED [None]
  - HEPATITIS B [None]
  - ALANINE AMINOTRANSFERASE INCREASED [None]
  - BIOPSY LIVER [None]
  - GAMMA-GLUTAMYLTRANSFERASE INCREASED [None]
  - BLOOD ALKALINE PHOSPHATASE INCREASED [None]
